FAERS Safety Report 9099404 (Version 1)
Quarter: 2013Q1

REPORT INFORMATION
  Report Type: Spontaneous
  Country: JP (occurrence: JP)
  Receive Date: 20130213
  Receipt Date: 20130213
  Transmission Date: 20140127
  Serious: Yes (Other)
  Sender: FDA-Public Use
  Company Number: JP-AMGEN-JPNSP2012022094

PATIENT
  Age: 68 Year
  Sex: Female
  Weight: 51 kg

DRUGS (16)
  1. ENBREL [Suspect]
     Indication: PRODUCT USED FOR UNKNOWN INDICATION
     Dosage: 25 MG, 2X/DAY
     Route: 058
     Dates: start: 20110409
  2. ENBREL [Suspect]
     Dosage: 50 MG, 1X/DAY
     Route: 058
     Dates: start: 20110412, end: 20110627
  3. ENBREL [Suspect]
     Dosage: 50 MG, 1X/DAY
     Route: 058
     Dates: start: 20110704
  4. METHOTREXATE [Suspect]
     Indication: PRODUCT USED FOR UNKNOWN INDICATION
     Dosage: UNK
     Dates: end: 20120326
  5. PROGRAF [Suspect]
     Indication: RHEUMATOID ARTHRITIS
     Dosage: 1 MG, 1X/DAY
     Route: 048
     Dates: start: 20110325
  6. PREDONINE                          /00016201/ [Suspect]
     Indication: RHEUMATOID ARTHRITIS
     Dosage: 10 MG, 1X/DAY
     Route: 048
     Dates: start: 20100408, end: 20110516
  7. PREDONINE                          /00016201/ [Suspect]
     Dosage: 9.5 MG, 1X/DAY
     Route: 048
     Dates: start: 20110516, end: 20110613
  8. PREDONINE                          /00016201/ [Suspect]
     Dosage: 3.5 MG, 1X/DAY
     Route: 048
     Dates: start: 20110613, end: 20120116
  9. PREDONINE                          /00016201/ [Suspect]
     Dosage: 3 MG, 1X/DAY
     Route: 048
     Dates: start: 20120116, end: 20120409
  10. PREDONINE                          /00016201/ [Suspect]
     Dosage: 2.5 MG, 1X/DAY
     Route: 048
     Dates: start: 20120419
  11. RABEPRAZOLE [Concomitant]
     Indication: GASTROOESOPHAGEAL REFLUX DISEASE
     Dosage: 10 MG, 1X/DAY
     Route: 048
     Dates: start: 20110613
  12. SHIOSOL [Concomitant]
     Indication: RHEUMATOID ARTHRITIS
     Dosage: 25 MG, 1X/DAY
     Route: 041
     Dates: start: 20100325
  13. DEPAS [Concomitant]
     Indication: INSOMNIA
     Dosage: 0.5 MG, 1X/DAY
     Route: 048
     Dates: start: 20100628
  14. RECALBON [Concomitant]
     Indication: OSTEOPOROSIS
     Dosage: 50 MG, MONTHLY
     Route: 048
     Dates: start: 20120116
  15. DIOVAN [Concomitant]
     Indication: HYPERTENSION
     Dosage: 20 MG, 1X/DAY
     Route: 048
     Dates: start: 20120116
  16. CELECOX [Concomitant]
     Indication: RHEUMATOID ARTHRITIS
     Dosage: 100 MG, 1X/DAY
     Route: 048
     Dates: start: 20100408

REACTIONS (1)
  - Interstitial lung disease [Recovering/Resolving]
